FAERS Safety Report 4539210-1 (Version None)
Quarter: 2004Q4

REPORT INFORMATION
  Report Type: 
  Country: None (occurrence: None)
  Receive Date: 20041222
  Receipt Date: 20041214
  Transmission Date: 20050328
  Serious: Yes (Other)
  Sender: FDA-Public Use
  Company Number: 2004110527

PATIENT
  Age: 57 Year
  Sex: Male
  Weight: 45.8 kg

DRUGS (1)
  1. SULPERAZON (SULBACTAM, CEFOPERAZONE) [Suspect]
     Indication: CHOLANGITIS
     Dosage: 2 GRAM (1 GRAM, 2 ); INTRAVENOUS
     Route: 042
     Dates: start: 20041125, end: 20041125

REACTIONS (1)
  - ANAPHYLACTIC SHOCK [None]
